FAERS Safety Report 22523826 (Version 1)
Quarter: 2023Q2

REPORT INFORMATION
  Report Type: Spontaneous
  Country: US (occurrence: US)
  Receive Date: 20230606
  Receipt Date: 20230606
  Transmission Date: 20230722
  Serious: No
  Sender: FDA-Public Use
  Company Number: US-ABBVIE-5189271

PATIENT
  Sex: Female

DRUGS (5)
  1. HUMIRA [Suspect]
     Active Substance: ADALIMUMAB
     Indication: Uveitis
     Route: 058
  2. HUMIRA [Suspect]
     Active Substance: ADALIMUMAB
     Indication: Cystoid macular oedema
  3. CELLCEPT [Suspect]
     Active Substance: MYCOPHENOLATE MOFETIL
     Indication: Cystoid macular oedema
     Route: 065
  4. METHOTREXATE [Suspect]
     Active Substance: METHOTREXATE
     Indication: Cystoid macular oedema
     Route: 065
  5. IMURAN [Suspect]
     Active Substance: AZATHIOPRINE
     Indication: Cystoid macular oedema
     Route: 065

REACTIONS (2)
  - Therapeutic product effect incomplete [Unknown]
  - Therapeutic product effect incomplete [Unknown]
